FAERS Safety Report 11001014 (Version 1)
Quarter: 2015Q2

REPORT INFORMATION
  Report Type: Spontaneous
  Country: US (occurrence: US)
  Receive Date: 20150408
  Receipt Date: 20150408
  Transmission Date: 20150821
  Serious: No
  Sender: FDA-Public Use
  Company Number: US-SA-2014SA151782

PATIENT
  Age: 96 Year
  Sex: Female

DRUGS (1)
  1. ALLEGRA [Suspect]
     Active Substance: FEXOFENADINE HYDROCHLORIDE
     Dosage: PRODUCT START : 4 DAYS AGO
     Route: 048

REACTIONS (2)
  - Condition aggravated [Unknown]
  - Pollakiuria [Unknown]

NARRATIVE: CASE EVENT DATE: 20141030
